FAERS Safety Report 6158533-6 (Version None)
Quarter: 2009Q2

REPORT INFORMATION
  Report Type: 
  Country: None (occurrence: None)
  Receive Date: 20090417
  Receipt Date: 20090408
  Transmission Date: 20091009
  Serious: Yes (Hospitalization)
  Sender: FDA-Public Use
  Company Number: SE-AMGEN-UK337768

PATIENT
  Sex: Female
  Weight: 62 kg

DRUGS (7)
  1. NEULASTA [Suspect]
     Indication: DRUG USE FOR UNKNOWN INDICATION
     Route: 065
  2. BEVACIZUMAB [Suspect]
     Indication: LYMPHOMA
     Route: 042
     Dates: start: 20090211, end: 20090226
  3. RITUXIMAB [Suspect]
     Indication: LYMPHOMA
     Route: 065
  4. CYCLOPHOSPHAMIDE [Suspect]
     Indication: LYMPHOMA
     Route: 065
  5. DOXORUBICIN HCL [Suspect]
     Indication: LYMPHOMA
     Route: 065
  6. VINCRISTINE [Suspect]
     Indication: LYMPHOMA
     Route: 065
  7. PREDNISONE [Suspect]
     Indication: LYMPHOMA
     Route: 065

REACTIONS (1)
  - BACK PAIN [None]
